FAERS Safety Report 25721115 (Version 1)
Quarter: 2025Q3

REPORT INFORMATION
  Report Type: Spontaneous
  Country: US (occurrence: None)
  Receive Date: 20250822
  Receipt Date: 20250822
  Transmission Date: 20251021
  Serious: No
  Sender: FDA-CTU
  Company Number: None

PATIENT
  Age: 11 Year
  Sex: Male

DRUGS (2)
  1. ENDARI [Suspect]
     Active Substance: GLUTAMINE
     Indication: Sickle cell trait
     Dosage: FREQUENCY : TWICE A DAY;?
     Route: 048
  2. HYDROXYUREA [Concomitant]
     Active Substance: HYDROXYUREA
     Dates: start: 20250624

REACTIONS (1)
  - Bone marrow transplant [None]

NARRATIVE: CASE EVENT DATE: 20250822
